FAERS Safety Report 5230500-6 (Version None)
Quarter: 2007Q1

REPORT INFORMATION
  Report Type: 
  Country: None (occurrence: None)
  Receive Date: 20070202
  Receipt Date: 20070123
  Transmission Date: 20070707
  Serious: Yes (Hospitalization)
  Sender: FDA-Public Use
  Company Number: 223152

PATIENT
  Age: 47 Year
  Sex: Male

DRUGS (2)
  1. RAPTIVA [Suspect]
     Indication: PSORIASIS
     Dosage: 0.8 ML, 1/WEEK, SUBCUTANEOUS
     Route: 058
     Dates: start: 20030514, end: 20031021
  2. RAPTIVA [Suspect]
     Indication: PSORIASIS
     Dosage: 0.8 ML, 1/WEEK, SUBCUTANEOUS
     Route: 058
     Dates: start: 20041115, end: 20050823

REACTIONS (17)
  - ANAEMIA [None]
  - ASPARTATE AMINOTRANSFERASE INCREASED [None]
  - BETA GLOBULIN INCREASED [None]
  - BLOOD LACTATE DEHYDROGENASE INCREASED [None]
  - BONE MARROW FAILURE [None]
  - DRUG TOXICITY [None]
  - EPISTAXIS [None]
  - EPSTEIN-BARR VIRUS INFECTION [None]
  - HYPOKALAEMIA [None]
  - INFLAMMATION [None]
  - LYMPHADENOPATHY [None]
  - NEUTROPHIL COUNT DECREASED [None]
  - PYREXIA [None]
  - STAPHYLOCOCCAL SEPSIS [None]
  - T-CELL LYMPHOMA [None]
  - TESTIS CANCER [None]
  - VIRAL LOAD INCREASED [None]
